FAERS Safety Report 14473502 (Version 1)
Quarter: 2018Q1

REPORT INFORMATION
  Report Type: Spontaneous
  Country: US (occurrence: US)
  Receive Date: 20180201
  Receipt Date: 20180201
  Transmission Date: 20180509
  Serious: Yes (Life-Threatening, Hospitalization, Other)
  Sender: FDA-Public Use
  Company Number: US-WEST-WARD PHARMACEUTICALS CORP.-US-H14001-18-00657

PATIENT
  Age: 64 Year
  Sex: Male

DRUGS (2)
  1. CHROMIUM PICOLINATE [Suspect]
     Active Substance: CHROMIUM PICOLINATE
     Indication: ERECTILE DYSFUNCTION
     Dosage: ()
     Route: 065
  2. TESTOSTERONE. [Suspect]
     Active Substance: TESTOSTERONE
     Indication: ERECTILE DYSFUNCTION
     Dosage: ()
     Route: 065

REACTIONS (4)
  - Drug-induced liver injury [Unknown]
  - Toxicity to various agents [Recovering/Resolving]
  - Intentional product misuse [Unknown]
  - Bradycardia [Recovering/Resolving]
